FAERS Safety Report 6901113-2 (Version None)
Quarter: 2010Q3

REPORT INFORMATION
  Report Type: 
  Country: None (occurrence: None)
  Receive Date: 20100803
  Receipt Date: 20100720
  Transmission Date: 20110219
  Serious: Yes (Hospitalization)
  Sender: FDA-Public Use
  Company Number: BR-MEDIMMUNE-MEDI-0011436

PATIENT
  Sex: Male
  Weight: 3.74 kg

DRUGS (1)
  1. SYNAGIS [Suspect]
     Indication: BRONCHOPULMONARY DYSPLASIA
     Route: 030
     Dates: start: 20100303, end: 20100601

REACTIONS (5)
  - BRONCHIOLITIS [None]
  - DYSPNOEA [None]
  - FATIGUE [None]
  - NASOPHARYNGITIS [None]
  - PNEUMONIA [None]
